FAERS Safety Report 11300011 (Version 8)
Quarter: 2019Q1

REPORT INFORMATION
  Report Type: Spontaneous
  Country: US (occurrence: US)
  Receive Date: 20150722
  Receipt Date: 20190121
  Transmission Date: 20190417
  Serious: No
  Sender: FDA-Public Use
  Company Number: US-ELI_LILLY_AND_COMPANY-US201103003620

PATIENT
  Age: 71 Year
  Sex: Female

DRUGS (7)
  1. HUMATROPE [Suspect]
     Active Substance: SOMATROPIN
     Indication: GROWTH HORMONE DEFICIENCY
     Dosage: 0.2 MG, QD
     Route: 058
  2. HUMATROPE [Suspect]
     Active Substance: SOMATROPIN
     Dosage: UNK, UNKNOWN
     Route: 058
  3. HUMATROPE [Suspect]
     Active Substance: SOMATROPIN
     Dosage: 0.15 MG, QD
     Route: 058
  4. HUMATROPE [Suspect]
     Active Substance: SOMATROPIN
     Dosage: 0.15 MG, QD
     Route: 058
  5. THYROID THERAPY [Concomitant]
     Active Substance: UNSPECIFIED INGREDIENT
     Indication: PRODUCT USED FOR UNKNOWN INDICATION
     Dosage: UNK UNK, UNKNOWN
     Route: 065
  6. HUMATROPE [Suspect]
     Active Substance: SOMATROPIN
     Dosage: 0.15 MG, QD
     Route: 058
  7. HUMATROPE [Suspect]
     Active Substance: SOMATROPIN
     Dosage: 0.15 UNK, UNKNOWN
     Route: 058

REACTIONS (30)
  - Joint stiffness [Unknown]
  - Neuropathy peripheral [Not Recovered/Not Resolved]
  - Pollakiuria [Not Recovered/Not Resolved]
  - Malaise [Unknown]
  - Nausea [Unknown]
  - Bone pain [Not Recovered/Not Resolved]
  - Arthritis [Unknown]
  - Drug ineffective [Unknown]
  - Product storage error [Unknown]
  - Blood glucose increased [Unknown]
  - Oedema [Unknown]
  - Poor quality sleep [Unknown]
  - Drug intolerance [Unknown]
  - Wrong technique in product usage process [Unknown]
  - Back pain [Unknown]
  - Pain [Not Recovered/Not Resolved]
  - Carpal tunnel syndrome [Recovered/Resolved]
  - Stress [Unknown]
  - Product dose omission [Unknown]
  - Abdominal pain [Unknown]
  - Viral infection [Unknown]
  - Dysstasia [Unknown]
  - Arthralgia [Not Recovered/Not Resolved]
  - Diarrhoea [Unknown]
  - Frequent bowel movements [Unknown]
  - Depressed mood [Unknown]
  - Pneumonia [Recovered/Resolved]
  - Thinking abnormal [Unknown]
  - Influenza like illness [Unknown]
  - Paraesthesia [Unknown]

NARRATIVE: CASE EVENT DATE: 20180402
